FAERS Safety Report 23580137 (Version 1)
Quarter: 2024Q1

REPORT INFORMATION
  Report Type: Report from Study
  Country: BR (occurrence: BR)
  Receive Date: 20240229
  Receipt Date: 20240229
  Transmission Date: 20240410
  Serious: Yes (Hospitalization, Other)
  Sender: FDA-Public Use
  Company Number: BR-JNJFOC-20240273347

PATIENT
  Age: 75 Year
  Sex: Female

DRUGS (3)
  1. GOLIMUMAB [Suspect]
     Active Substance: GOLIMUMAB
     Indication: Axial spondyloarthritis
     Route: 065
     Dates: start: 20220525
  2. GOLIMUMAB [Suspect]
     Active Substance: GOLIMUMAB
  3. GOLIMUMAB [Suspect]
     Active Substance: GOLIMUMAB

REACTIONS (7)
  - Post procedural infection [Recovered/Resolved]
  - Skin cancer [Recovered/Resolved]
  - Fall [Unknown]
  - Rib fracture [Unknown]
  - COVID-19 [Unknown]
  - Therapeutic response decreased [Unknown]
  - Arthralgia [Unknown]

NARRATIVE: CASE EVENT DATE: 20230202
